FAERS Safety Report 17699056 (Version 1)
Quarter: 2020Q2

REPORT INFORMATION
  Report Type: Spontaneous
  Country: US (occurrence: US)
  Receive Date: 20200422
  Receipt Date: 20200422
  Transmission Date: 20200714
  Serious: No
  Sender: FDA-Public Use
  Company Number: None

PATIENT
  Sex: Female

DRUGS (2)
  1. MYCOPHENOLATE 500MG ROXANE [Suspect]
     Active Substance: MYCOPHENOLATE MOFETIL
     Indication: IDIOPATHIC URTICARIA
     Route: 048
     Dates: start: 20190608
  2. MYCOPHENOLATE 500MG ROXANE [Suspect]
     Active Substance: MYCOPHENOLATE MOFETIL
     Indication: ANGIOEDEMA
     Route: 048
     Dates: start: 20190608

REACTIONS (2)
  - Therapy non-responder [None]
  - Product administration interrupted [None]
